FAERS Safety Report 7859302-9 (Version None)
Quarter: 2011Q4

REPORT INFORMATION
  Report Type: 
  Country: None (occurrence: None)
  Receive Date: 20111027
  Receipt Date: 20111021
  Transmission Date: 20120403
  Serious: Yes (Death)
  Sender: FDA-Public Use
  Company Number: JP-ASTELLAS-2011JP007559

PATIENT
  Age: 85 Year
  Sex: Male

DRUGS (2)
  1. FUNGUARD [Suspect]
     Indication: BRONCHOPULMONARY ASPERGILLOSIS
     Route: 065
  2. VORICONAZOLE [Concomitant]
     Indication: BRONCHOPULMONARY ASPERGILLOSIS
     Route: 065

REACTIONS (2)
  - RESPIRATORY FAILURE [None]
  - DRUG INEFFECTIVE [None]
